FAERS Safety Report 24418208 (Version 3)
Quarter: 2024Q4

REPORT INFORMATION
  Report Type: Report from Study
  Country: CA (occurrence: CA)
  Receive Date: 20241009
  Receipt Date: 20241218
  Transmission Date: 20250115
  Serious: Yes (Death, Hospitalization, Other)
  Sender: SANDOZ
  Company Number: CA-SANDOZ-SDZ2023CA033480

PATIENT
  Sex: Male

DRUGS (1)
  1. HYRIMOZ [Suspect]
     Active Substance: ADALIMUMAB-ADAZ
     Indication: Psoriatic arthropathy
     Dosage: 40 MG, Q2W
     Route: 058
     Dates: start: 20220104

REACTIONS (12)
  - Death [Fatal]
  - Bone cancer [Unknown]
  - Lung neoplasm malignant [Unknown]
  - Diabetes mellitus inadequate control [Unknown]
  - Aortic occlusion [Unknown]
  - Fibrosis [Unknown]
  - Phlebitis [Unknown]
  - Peripheral swelling [Unknown]
  - Arthralgia [Unknown]
  - Renal disorder [Unknown]
  - Arthritis [Unknown]
  - Osteoarthritis [Unknown]
